FAERS Safety Report 21398205 (Version 2)
Quarter: 2022Q4

REPORT INFORMATION
  Report Type: Report from Study
  Country: US (occurrence: US)
  Receive Date: 20220930
  Receipt Date: 20221011
  Transmission Date: 20230113
  Serious: No
  Sender: FDA-Public Use
  Company Number: US-SA-SAC20220929000082

PATIENT
  Sex: Female

DRUGS (12)
  1. TERIFLUNOMIDE [Suspect]
     Active Substance: TERIFLUNOMIDE
     Indication: Multiple sclerosis
     Dosage: 7 MG, QD
     Route: 048
     Dates: start: 20191207
  2. SODIUM FLUORIDE\SODIUM MONOFLUOROPHOSPHATE [Concomitant]
     Active Substance: SODIUM FLUORIDE\SODIUM MONOFLUOROPHOSPHATE
  3. LITHIUM [Concomitant]
     Active Substance: LITHIUM
  4. ATORVASTATIN [Concomitant]
     Active Substance: ATORVASTATIN
  5. VIMPAT [Concomitant]
     Active Substance: LACOSAMIDE
  6. LISINOPRIL [Concomitant]
     Active Substance: LISINOPRIL
  7. ZOLOFT [Concomitant]
     Active Substance: SERTRALINE HYDROCHLORIDE
  8. ASPIRIN [Concomitant]
     Active Substance: ASPIRIN
  9. VITAMIN D NOS [Concomitant]
     Active Substance: VITAMIN D NOS
  10. BIOTIN [Concomitant]
     Active Substance: BIOTIN
  11. JARDIAN [Concomitant]
  12. BASAGLAR [Concomitant]
     Active Substance: INSULIN GLARGINE

REACTIONS (1)
  - Memory impairment [Not Recovered/Not Resolved]
